FAERS Safety Report 9266288 (Version 1)
Quarter: 2013Q2

REPORT INFORMATION
  Report Type: Spontaneous
  Country: US (occurrence: US)
  Receive Date: 20130502
  Receipt Date: 20130502
  Transmission Date: 20140414
  Serious: Yes (Other)
  Sender: FDA-Public Use
  Company Number: US-PFIZER INC-2013135926

PATIENT
  Sex: Female

DRUGS (2)
  1. IBUPROFEN [Suspect]
     Indication: PAIN
     Dosage: UNK
     Route: 048
  2. IBUPROFEN [Suspect]
     Indication: ANKLE FRACTURE

REACTIONS (3)
  - Haematemesis [Unknown]
  - Haemorrhage [Unknown]
  - Epistaxis [Unknown]
